FAERS Safety Report 18817989 (Version 2)
Quarter: 2022Q2

REPORT INFORMATION
  Report Type: Spontaneous
  Country: US (occurrence: US)
  Receive Date: 20210201
  Receipt Date: 20220428
  Transmission Date: 20220720
  Serious: No
  Sender: FDA-Public Use
  Company Number: US-PFIZER INC-2021086172

PATIENT
  Age: 60 Year
  Sex: Female

DRUGS (1)
  1. INLYTA [Suspect]
     Active Substance: AXITINIB
     Dosage: UNK
     Dates: start: 20200101

REACTIONS (8)
  - Hypertension [Unknown]
  - Hypotension [Unknown]
  - Diarrhoea [Unknown]
  - Therapy interrupted [Unknown]
  - Bronchitis [Unknown]
  - Asthenia [Unknown]
  - Blister [Unknown]
  - COVID-19 [Unknown]
